FAERS Safety Report 9689056 (Version 2)
Quarter: 2013Q4

REPORT INFORMATION
  Report Type: Spontaneous
  Country: KR (occurrence: None)
  Receive Date: 20131112
  Receipt Date: 20131113
  Transmission Date: 20140711
  Serious: Yes (Hospitalization)
  Sender: FDA-Public Use
  Company Number: KR-JNJFOC-20131100637

PATIENT
  Age: 53 Year
  Sex: Male
  Weight: 73 kg

DRUGS (2)
  1. DACOGEN [Suspect]
     Indication: MYELODYSPLASTIC SYNDROME
     Route: 042
     Dates: start: 20131014, end: 20131018
  2. METOCLOPRAMIDE HYDROCHLORIDE (METOCLOPRAMIDE HYDROCHLORIDE) [Concomitant]

REACTIONS (6)
  - Febrile neutropenia [None]
  - Pancytopenia [None]
  - Electrocardiogram ST segment elevation [None]
  - Cardiomegaly [None]
  - Pericardial effusion [None]
  - Hepatitis acute [None]
